FAERS Safety Report 14411100 (Version 2)
Quarter: 2018Q1

REPORT INFORMATION
  Report Type: Spontaneous
  Country: US (occurrence: US)
  Receive Date: 20180119
  Receipt Date: 20180319
  Transmission Date: 20180509
  Serious: Yes (Hospitalization, Disabling)
  Sender: FDA-Public Use
  Company Number: US-JNJFOC-20171210443

PATIENT
  Age: 58 Year
  Sex: Male

DRUGS (2)
  1. INVOKANA [Suspect]
     Active Substance: CANAGLIFLOZIN
     Indication: TYPE 2 DIABETES MELLITUS
     Dosage: IN VARYING DOSES OF 100 MG 300 MG
     Route: 048
     Dates: start: 20151104
  2. INVOKANA [Suspect]
     Active Substance: CANAGLIFLOZIN
     Indication: DIABETES MELLITUS MANAGEMENT
     Dosage: IN VARYING DOSES OF 100 MG 300 MG
     Route: 048
     Dates: start: 20151104

REACTIONS (4)
  - Amputation [Unknown]
  - Angiopathy [Unknown]
  - Gangrene [Unknown]
  - Sepsis [Unknown]

NARRATIVE: CASE EVENT DATE: 201601
